FAERS Safety Report 9007412 (Version 2)
Quarter: 2013Q1

REPORT INFORMATION
  Report Type: Report from Study
  Country: US (occurrence: US)
  Receive Date: 20130110
  Receipt Date: 20130208
  Transmission Date: 20140127
  Serious: No
  Sender: FDA-Public Use
  Company Number: US-US-EMD SERONO, INC.-7185559

PATIENT
  Sex: Female

DRUGS (6)
  1. REBIF [Suspect]
     Indication: PRODUCT USED FOR UNKNOWN INDICATION
     Route: 058
     Dates: start: 20120912
  2. METHIMAZOLE [Concomitant]
     Indication: HYPERTHYROIDISM
  3. IODINE [Concomitant]
     Indication: HYPERTHYROIDISM
  4. IBUPROFEN [Concomitant]
     Indication: PREMEDICATION
  5. CYMBALTA [Concomitant]
     Indication: DEPRESSION
  6. LEVOTHYROXINE [Concomitant]
     Indication: HYPERTHYROIDISM

REACTIONS (4)
  - Neuralgia [Recovering/Resolving]
  - Feeling of body temperature change [Not Recovered/Not Resolved]
  - Skin sensitisation [Unknown]
  - Injection site bruising [Unknown]
